FAERS Safety Report 15916174 (Version 1)
Quarter: 2019Q1

REPORT INFORMATION
  Report Type: Spontaneous
  Country: CZ (occurrence: CZ)
  Receive Date: 20190204
  Receipt Date: 20190204
  Transmission Date: 20190417
  Serious: Yes (Other)
  Sender: FDA-Public Use
  Company Number: PHHY2019CZ024405

PATIENT
  Sex: Male

DRUGS (1)
  1. CORBILTA [Suspect]
     Active Substance: CARBIDOPA\ENTACAPONE\LEVODOPA
     Indication: PRODUCT USED FOR UNKNOWN INDICATION
     Dosage: 4-5 TABLETS DAILY
     Route: 065

REACTIONS (7)
  - Psychiatric symptom [Unknown]
  - Restless legs syndrome [Unknown]
  - Insomnia [Unknown]
  - Dyspnoea [Unknown]
  - Pollakiuria [Unknown]
  - Urinary tract infection [Unknown]
  - Dry mouth [Unknown]
